FAERS Safety Report 11358832 (Version 1)
Quarter: 2015Q3

REPORT INFORMATION
  Report Type: Spontaneous
  Country: US (occurrence: None)
  Receive Date: 20150807
  Receipt Date: 20150807
  Transmission Date: 20151125
  Serious: Yes (Disabling)
  Sender: FDA-Public Use
  Company Number: None

PATIENT
  Age: 59 Year
  Sex: Male
  Weight: 90.72 kg

DRUGS (2)
  1. ATORVASTATIN [Suspect]
     Active Substance: ATORVASTATIN
     Indication: CORONARY ARTERIAL STENT INSERTION
     Dosage: 1 DAILY
     Route: 048
     Dates: start: 20150620, end: 20150805
  2. METORPOLOL [Suspect]
     Active Substance: METOPROLOL
     Indication: CORONARY ARTERIAL STENT INSERTION
     Dosage: 1  TWICE DAILY TAKEN BY MOUTH
     Route: 048
     Dates: start: 20150620, end: 20150805

REACTIONS (3)
  - Muscle spasms [None]
  - Memory impairment [None]
  - Deafness [None]

NARRATIVE: CASE EVENT DATE: 20150722
